FAERS Safety Report 6372075-4 (Version None)
Quarter: 2009Q3

REPORT INFORMATION
  Report Type: 
  Country: None (occurrence: None)
  Receive Date: 20090917
  Receipt Date: 20090904
  Transmission Date: 20100115
  Serious: Yes (Death)
  Sender: FDA-Public Use
  Company Number: ADR16052009

PATIENT
  Age: 56 Year
  Sex: Male

DRUGS (5)
  1. CITALOPRAM       20 MG (MFR: UNKNOWN) [Suspect]
     Indication: DEPRESSION
     Route: 048
     Dates: start: 20090201
  2. ATENOLOL [Concomitant]
  3. DIGOXIN [Concomitant]
  4. PERINDOPRIL [Concomitant]
  5. WARFARIN SODIUM [Concomitant]

REACTIONS (1)
  - COMPLETED SUICIDE [None]
